FAERS Safety Report 4394144-0 (Version None)
Quarter: 2004Q3

REPORT INFORMATION
  Report Type: 
  Country: None (occurrence: None)
  Receive Date: 20040712
  Receipt Date: 20040630
  Transmission Date: 20050211
  Serious: Yes (Hospitalization)
  Sender: FDA-Public Use
  Company Number: PHBS2004JP08899

PATIENT
  Age: 64 Year
  Sex: Male

DRUGS (5)
  1. DIOVAN [Suspect]
     Indication: CARDIAC FAILURE
     Dosage: 160 MG/DAY
     Route: 048
     Dates: start: 20040618, end: 20040628
  2. LANSOPRAZOLE [Concomitant]
     Route: 048
     Dates: end: 20040628
  3. ALLOPURINOL TAB [Concomitant]
     Route: 048
     Dates: end: 20040628
  4. ALDACTONE [Concomitant]
     Route: 048
     Dates: end: 20040628
  5. WARFARIN SODIUM [Concomitant]
     Route: 048
     Dates: end: 20040628

REACTIONS (1)
  - LEUKOPENIA [None]
